FAERS Safety Report 9022319 (Version 1)
Quarter: 2013Q1

REPORT INFORMATION
  Report Type: Spontaneous
  Country: DE (occurrence: DE)
  Receive Date: 20130118
  Receipt Date: 20130118
  Transmission Date: 20140127
  Serious: Yes (Other)
  Sender: FDA-Public Use
  Company Number: PHHY2013DE003845

PATIENT
  Sex: Male

DRUGS (6)
  1. SANDIMMUN [Suspect]
     Indication: PROPHYLAXIS AGAINST TRANSPLANT REJECTION
     Dates: start: 2008, end: 2012
  2. CICLOSPORIN [Suspect]
     Indication: PROPHYLAXIS AGAINST TRANSPLANT REJECTION
     Dates: start: 201204, end: 201210
  3. LOSARTAN [Concomitant]
     Dosage: 50 MG, UNK
  4. PRAVASTATIN [Concomitant]
     Dosage: 40 MG, UNK
  5. IDEOS [Concomitant]
  6. CERTICAN [Concomitant]
     Dosage: 0.5 MG, UNK

REACTIONS (2)
  - Unresponsive to stimuli [Recovered/Resolved]
  - Staring [Recovered/Resolved]
